FAERS Safety Report 17206824 (Version 1)
Quarter: 2019Q4

REPORT INFORMATION
  Report Type: Spontaneous
  Country: DE (occurrence: DE)
  Receive Date: 20191227
  Receipt Date: 20191227
  Transmission Date: 20200122
  Serious: Yes (Death, Hospitalization)
  Sender: FDA-Public Use
  Company Number: DE-TEVA-2019-DE-1157479

PATIENT
  Age: 68 Year
  Sex: Female

DRUGS (6)
  1. TRASTUZUMAB. [Suspect]
     Active Substance: TRASTUZUMAB
     Dosage: NK MG, LAST DOSE ON 02.10.2017
  2. PERTUZUMAB. [Suspect]
     Active Substance: PERTUZUMAB
     Dosage: NK MG, LAST DOSE ON 02.10.2017
  3. FOSTER 200 MIKROGRAMM/ 6 MIKROGRAMM [Concomitant]
     Dosage: 200|6 MCG, 1-0-1-0
  4. CANDESARTAN. [Concomitant]
     Active Substance: CANDESARTAN
     Dosage: 16 MILLIGRAM DAILY; 16 MG, 1-0-0-0
  5. PANTOPRAZOL [Concomitant]
     Active Substance: PANTOPRAZOLE SODIUM
     Dosage: 40 MILLIGRAM DAILY; 40 MG, 1-0-0-0
  6. DOCETAXEL. [Suspect]
     Active Substance: DOCETAXEL
     Dosage: NK MG, LAST DOSE ON 02.10.2017

REACTIONS (4)
  - General physical health deterioration [Unknown]
  - Mucosal inflammation [Unknown]
  - Somnolence [Unknown]
  - Anaemia [Unknown]
